FAERS Safety Report 12628653 (Version 1)
Quarter: 2016Q3

REPORT INFORMATION
  Report Type: Spontaneous
  Country: US (occurrence: US)
  Receive Date: 20160808
  Receipt Date: 20160808
  Transmission Date: 20161109
  Serious: No
  Sender: FDA-Public Use
  Company Number: US-JAZZ-2016-US-004471

PATIENT
  Age: 35 Year
  Sex: Female

DRUGS (39)
  1. ALPRAZOLAM. [Concomitant]
     Active Substance: ALPRAZOLAM
  2. CLINDAMYCIN [Concomitant]
     Active Substance: CLINDAMYCIN\CLINDAMYCIN PHOSPHATE
  3. LEVOTHYROXINE. [Concomitant]
     Active Substance: LEVOTHYROXINE
  4. RELPAX [Concomitant]
     Active Substance: ELETRIPTAN HYDROBROMIDE
  5. WELLBUTRIN [Concomitant]
     Active Substance: BUPROPION HYDROCHLORIDE
  6. REZYST [Concomitant]
  7. AMITRIPTYLINE HCL [Concomitant]
     Active Substance: AMITRIPTYLINE
  8. XYREM [Suspect]
     Active Substance: SODIUM OXYBATE
     Indication: INSOMNIA
     Dosage: 4.5 G, BID
     Route: 048
     Dates: start: 201304, end: 201307
  9. CLONAZEPAM. [Concomitant]
     Active Substance: CLONAZEPAM
  10. CALCIUM [Concomitant]
     Active Substance: CALCIUM
  11. MULTIVITAMINS [Concomitant]
     Active Substance: VITAMINS
  12. KEPPRA [Concomitant]
     Active Substance: LEVETIRACETAM
  13. MELATONIN [Concomitant]
     Active Substance: MELATONIN
  14. LEVAQUIN [Concomitant]
     Active Substance: LEVOFLOXACIN
  15. PRODRIN [Concomitant]
     Active Substance: ACETAMINOPHEN\CAFFEINE\ISOMETHEPTENE MUCATE
  16. METHADONE [Concomitant]
     Active Substance: METHADONE HYDROCHLORIDE
  17. MORPHINE SULF [Concomitant]
     Active Substance: MORPHINE SULFATE
  18. CREON [Concomitant]
     Active Substance: PANCRELIPASE AMYLASE\PANCRELIPASE LIPASE\PANCRELIPASE PROTEASE
  19. PROMETHAZINE [Concomitant]
     Active Substance: PROMETHAZINE\PROMETHAZINE HYDROCHLORIDE
  20. XYREM [Suspect]
     Active Substance: SODIUM OXYBATE
     Dosage: 5 G, BID
     Route: 048
     Dates: start: 201307
  21. PRISTIQ EXTENDED-RELEASE [Concomitant]
     Active Substance: DESVENLAFAXINE SUCCINATE
  22. PRAVASTATIN SODIUM. [Concomitant]
     Active Substance: PRAVASTATIN SODIUM
  23. ERRIN [Concomitant]
     Active Substance: NORETHINDRONE
  24. NEXIUM [Concomitant]
     Active Substance: ESOMEPRAZOLE MAGNESIUM
  25. NEOSALUS [Concomitant]
  26. DIAZEPAM. [Concomitant]
     Active Substance: DIAZEPAM
  27. LOVAZA [Concomitant]
     Active Substance: OMEGA-3-ACID ETHYL ESTERS
  28. HUMALOG [Concomitant]
     Active Substance: INSULIN LISPRO
  29. NADOLOL. [Concomitant]
     Active Substance: NADOLOL
  30. AMBIEN [Concomitant]
     Active Substance: ZOLPIDEM TARTRATE
  31. PROZAC [Concomitant]
     Active Substance: FLUOXETINE HYDROCHLORIDE
  32. NOVOLOG [Concomitant]
     Active Substance: INSULIN ASPART
  33. PROTONIX [Concomitant]
     Active Substance: PANTOPRAZOLE SODIUM
  34. BUTALBITAL/ASA/CAFFEINE [Concomitant]
  35. XANAX [Concomitant]
     Active Substance: ALPRAZOLAM
  36. TRICOR [Concomitant]
     Active Substance: FENOFIBRATE
  37. LACTAID FAST ACT [Concomitant]
     Active Substance: LACTASE
  38. ASPIRIN. [Concomitant]
     Active Substance: ASPIRIN
  39. ZOFRAN [Concomitant]
     Active Substance: ONDANSETRON HYDROCHLORIDE

REACTIONS (2)
  - Drug ineffective [Unknown]
  - Fatigue [Unknown]

NARRATIVE: CASE EVENT DATE: 20160303
